FAERS Safety Report 9369439 (Version 1)
Quarter: 2013Q2

REPORT INFORMATION
  Report Type: Spontaneous
  Country: US (occurrence: US)
  Receive Date: 20130626
  Receipt Date: 20130626
  Transmission Date: 20140414
  Serious: Yes (Hospitalization)
  Sender: FDA-Public Use
  Company Number: US-BAYER-2013-078273

PATIENT
  Age: 30 Year
  Sex: Female
  Weight: 99.77 kg

DRUGS (7)
  1. YASMIN [Suspect]
  2. OCELLA [Suspect]
  3. ALBUTEROL [Concomitant]
     Dosage: UNK
     Route: 045
     Dates: start: 20121004
  4. SYMBICORT [Concomitant]
     Dosage: UNK
     Route: 045
     Dates: start: 20121004
  5. IRON [Concomitant]
     Dosage: UNK
     Route: 048
     Dates: start: 20121004
  6. NEXIUM [Concomitant]
     Dosage: UNK
     Route: 048
     Dates: start: 20121004
  7. ZYRTEC [Concomitant]
     Dosage: UNK
     Route: 048
     Dates: start: 20121004

REACTIONS (2)
  - Pulmonary embolism [None]
  - Deep vein thrombosis [None]
